FAERS Safety Report 12160277 (Version 2)
Quarter: 2016Q1

REPORT INFORMATION
  Report Type: Report from Study
  Country: TR (occurrence: TR)
  Receive Date: 20160308
  Receipt Date: 20160315
  Transmission Date: 20160526
  Serious: Yes (Hospitalization, Other)
  Sender: FDA-Public Use
  Company Number: TR-GLAXOSMITHKLINE-TR2016029496

PATIENT
  Age: 58 Year
  Sex: Male
  Weight: 82 kg

DRUGS (1)
  1. FLUTICASONE FUROATE + VILANTEROL TRIFENATATE [Suspect]
     Active Substance: FLUTICASONE FUROATE\VILANTEROL TRIFENATATE
     Indication: CHRONIC OBSTRUCTIVE PULMONARY DISEASE
     Dosage: 100/25 UG, QD
     Route: 055
     Dates: start: 20150512

REACTIONS (1)
  - Hypoxia [Recovering/Resolving]

NARRATIVE: CASE EVENT DATE: 20160229
